FAERS Safety Report 4466055-3 (Version None)
Quarter: 2004Q3

REPORT INFORMATION
  Report Type: 
  Country: None (occurrence: None)
  Receive Date: 20040930
  Receipt Date: 20040825
  Transmission Date: 20050211
  Serious: Yes (Death, Hospitalization)
  Sender: FDA-Public Use
  Company Number: F01200402597

PATIENT
  Age: 68 Year
  Sex: Female

DRUGS (4)
  1. (OXALIPLATIN) -SOLUTION - 85 MG/ M2 [Suspect]
     Indication: COLORECTAL CANCER
     Dosage: 85 MG/M2 Q2W
     Route: 042
     Dates: start: 20040803, end: 20040803
  2. FLUOROURACIL SOLUTION 3430 MG [Suspect]
     Dosage: 400 MG/M2 BOLUS + 600 MG/M2 22 HOURS INFUSION, Q2W
     Route: 042
     Dates: start: 20040803, end: 20040804
  3. LEUCOVORIN SOLUTION 686 MG [Suspect]
     Dosage: 200 MG/M2 Q2W
     Route: 042
     Dates: start: 20040803, end: 20040804
  4. LASIX [Concomitant]

REACTIONS (3)
  - ILEUS [None]
  - METASTASES TO LUNG [None]
  - PERITONITIS [None]
